FAERS Safety Report 16050323 (Version 6)
Quarter: 2019Q3

REPORT INFORMATION
  Report Type: Spontaneous
  Country: US (occurrence: US)
  Receive Date: 20190308
  Receipt Date: 20190927
  Transmission Date: 20191004
  Serious: Yes (Hospitalization, Other)
  Sender: FDA-Public Use
  Company Number: US-GLAXOSMITHKLINE-US2019GSK040732

PATIENT
  Sex: Female

DRUGS (3)
  1. PREVACID [Suspect]
     Active Substance: LANSOPRAZOLE
     Indication: GASTROOESOPHAGEAL REFLUX DISEASE
     Dosage: 15 MG, QD
     Route: 065
  2. PREVACID [Suspect]
     Active Substance: LANSOPRAZOLE
     Indication: PRODUCT USED FOR UNKNOWN INDICATION
     Dosage: 30 MG, QD
     Route: 065
  3. PANTOPRAZOLE [Suspect]
     Active Substance: PANTOPRAZOLE
     Indication: GASTROOESOPHAGEAL REFLUX DISEASE
     Dosage: 40 MG, QD
     Route: 065

REACTIONS (16)
  - Pyelonephritis [Unknown]
  - Acute kidney injury [Not Recovered/Not Resolved]
  - Escherichia urinary tract infection [Unknown]
  - Renal artery stenosis [Unknown]
  - Renal impairment [Unknown]
  - Renal artery arteriosclerosis [Unknown]
  - Dysuria [Unknown]
  - Tubulointerstitial nephritis [Unknown]
  - Renal artery stent placement [Unknown]
  - Renal vessel disorder [Unknown]
  - Chronic kidney disease [Unknown]
  - Renal failure [Unknown]
  - Nephropathy [Unknown]
  - Renal papillary necrosis [Unknown]
  - Haematuria [Unknown]
  - Renal injury [Unknown]
